FAERS Safety Report 21168344 (Version 1)
Quarter: 2022Q3

REPORT INFORMATION
  Report Type: Spontaneous
  Country: FR (occurrence: FR)
  Receive Date: 20220803
  Receipt Date: 20220803
  Transmission Date: 20221027
  Serious: Yes (Life-Threatening, Hospitalization, Other)
  Sender: FDA-Public Use
  Company Number: FR-SA-SAC20220725000011

PATIENT
  Age: 63 Year
  Sex: Female
  Weight: 55 kg

DRUGS (4)
  1. GEMCITABINE HYDROCHLORIDE [Suspect]
     Active Substance: GEMCITABINE HYDROCHLORIDE
     Indication: Ovarian cancer metastatic
     Dosage: 1550 MG, QW
     Route: 065
     Dates: start: 20220414, end: 20220422
  2. PIPERACILLIN SODIUM\TAZOBACTAM SODIUM [Suspect]
     Active Substance: PIPERACILLIN SODIUM\TAZOBACTAM SODIUM
     Indication: Febrile bone marrow aplasia
     Dosage: 4 G, EVERY 8 HRS (TID)
     Route: 065
     Dates: start: 20220325, end: 20220505
  3. LENOGRASTIM [Suspect]
     Active Substance: LENOGRASTIM
     Indication: Ovarian cancer metastatic
     Dosage: 34 MU, DAILY
     Route: 065
     Dates: start: 20220423, end: 20220427
  4. CARBOPLATIN [Suspect]
     Active Substance: CARBOPLATIN
     Indication: Ovarian cancer metastatic
     Dosage: 427 MG, OTHER (Q3W)
     Route: 065
     Dates: start: 20220415, end: 20220602

REACTIONS (4)
  - Immune thrombocytopenia [Recovering/Resolving]
  - Pulmonary alveolar haemorrhage [Unknown]
  - Cerebral haemorrhage [Unknown]
  - Febrile bone marrow aplasia [Recovered/Resolved]

NARRATIVE: CASE EVENT DATE: 20220426
